FAERS Safety Report 6418378-6 (Version None)
Quarter: 2009Q4

REPORT INFORMATION
  Report Type: 
  Country: None (occurrence: None)
  Receive Date: 20091028
  Receipt Date: 20091022
  Transmission Date: 20100525
  Serious: Yes (Other)
  Sender: FDA-Public Use
  Company Number: GB-AMGEN-QUU370526

PATIENT
  Sex: Male
  Weight: 62.5 kg

DRUGS (11)
  1. ARANESP [Suspect]
     Indication: DIALYSIS
     Dates: start: 20071009, end: 20091006
  2. IRON [Concomitant]
     Route: 042
  3. LANSOPRAZOLE [Concomitant]
     Dates: start: 20090728
  4. FOLIC ACID [Concomitant]
     Dates: start: 20090618
  5. SODIUM BICARBONATE IN PLASTIC CONTAINER [Concomitant]
     Dates: start: 20080731
  6. HUMULIN R [Concomitant]
     Dates: start: 20071009
  7. BISOPROLOL [Concomitant]
     Dates: start: 20070621
  8. QUINIDINE SULFATE [Concomitant]
     Dates: start: 20070621
  9. RENAGEL [Concomitant]
     Dates: start: 20061114
  10. ASPIRIN [Concomitant]
     Dates: start: 20080515
  11. VENOFER [Concomitant]
     Dates: start: 20081203, end: 20091006

REACTIONS (3)
  - APLASIA PURE RED CELL [None]
  - DYSPNOEA [None]
  - LETHARGY [None]
